FAERS Safety Report 13602739 (Version 1)
Quarter: 2017Q2

REPORT INFORMATION
  Report Type: Spontaneous
  Country: US (occurrence: US)
  Receive Date: 20170601
  Receipt Date: 20170601
  Transmission Date: 20170830
  Serious: Yes (Other)
  Sender: FDA-Public Use
  Company Number: US-INCYTE CORPORATION-2017IN003763

PATIENT

DRUGS (1)
  1. JAKAFI [Suspect]
     Active Substance: RUXOLITINIB
     Indication: MYELOFIBROSIS
     Dosage: 5 MG, QD
     Route: 048
     Dates: start: 20170506

REACTIONS (4)
  - Contusion [Unknown]
  - Dizziness [Not Recovered/Not Resolved]
  - Blast cell count increased [Unknown]
  - Fatigue [Unknown]

NARRATIVE: CASE EVENT DATE: 20170506
